FAERS Safety Report 12281463 (Version 3)
Quarter: 2016Q2

REPORT INFORMATION
  Report Type: Spontaneous
  Country: US (occurrence: US)
  Receive Date: 20160419
  Receipt Date: 20160620
  Transmission Date: 20160815
  Serious: No
  Sender: FDA-Public Use
  Company Number: US-009507513-1604USA010888

PATIENT
  Age: 23 Year
  Sex: Female
  Weight: 54.42 kg

DRUGS (3)
  1. AVOBENZONE (+) HOMOSALATE (+) OCTINOXATE (+) OCTISALATE [Suspect]
     Active Substance: AVOBENZONE\HOMOSALATE\OCTINOXATE\OCTISALATE
     Indication: PRODUCT USED FOR UNKNOWN INDICATION
     Dosage: UNK
     Route: 061
     Dates: start: 20160330, end: 20160330
  2. LIDOCAINE. [Suspect]
     Active Substance: LIDOCAINE
     Indication: SUNBURN
     Dosage: UNK
     Route: 061
     Dates: start: 20160330
  3. ADDERALL [Concomitant]
     Active Substance: AMPHETAMINE ASPARTATE\AMPHETAMINE SULFATE\DEXTROAMPHETAMINE SACCHARATE\DEXTROAMPHETAMINE SULFATE
     Indication: PRODUCT USED FOR UNKNOWN INDICATION

REACTIONS (9)
  - Skin exfoliation [Not Recovered/Not Resolved]
  - Product physical issue [Unknown]
  - Drug ineffective [Unknown]
  - Skin discolouration [Recovered/Resolved]
  - Erythema [Recovered/Resolved]
  - Product colour issue [Unknown]
  - Pain [Recovered/Resolved]
  - Sunburn [Not Recovered/Not Resolved]
  - Skin disorder [Unknown]

NARRATIVE: CASE EVENT DATE: 20160330
